FAERS Safety Report 6103897-2 (Version None)
Quarter: 2009Q1

REPORT INFORMATION
  Report Type: 
  Country: None (occurrence: None)
  Receive Date: 20090305
  Receipt Date: 20090224
  Transmission Date: 20090719
  Serious: Yes (Hospitalization, Congenital Anomaly)
  Sender: FDA-Public Use
  Company Number: A0681248A

PATIENT
  Sex: Male
  Weight: 1.5 kg

DRUGS (7)
  1. PAXIL [Suspect]
     Indication: DEPRESSION
     Dosage: 40MG PER DAY
     Dates: start: 20000101, end: 20040101
  2. PAXIL CR [Suspect]
     Indication: DEPRESSION
     Dosage: 37.5MG UNKNOWN
  3. VITAMIN TAB [Concomitant]
  4. BETAMETHASONE [Concomitant]
  5. ALDOMET [Concomitant]
  6. CELESTONE SOLUSPAN [Concomitant]
     Dates: start: 20000908
  7. MAGNESIUM SULFATE [Concomitant]

REACTIONS (7)
  - APNOEA [None]
  - BRADYCARDIA [None]
  - DRUG EXPOSURE DURING PREGNANCY [None]
  - HEART DISEASE CONGENITAL [None]
  - MULTIPLE CONGENITAL ABNORMALITIES [None]
  - PATENT DUCTUS ARTERIOSUS [None]
  - RESPIRATORY DISTRESS [None]
